FAERS Safety Report 4833681-9 (Version None)
Quarter: 2005Q4

REPORT INFORMATION
  Report Type: 
  Country: None (occurrence: None)
  Receive Date: 20051114
  Receipt Date: 20051103
  Transmission Date: 20060501
  Serious: Yes (Other)
  Sender: FDA-Public Use
  Company Number: USA0511112760

PATIENT
  Age: 71 Year
  Sex: Female
  Weight: 108.8633 kg

DRUGS (1)
  1. HUMALOG [Suspect]
     Dosage: 7 U DAY

REACTIONS (1)
  - BLINDNESS [None]
